FAERS Safety Report 26019484 (Version 1)
Quarter: 2025Q4

REPORT INFORMATION
  Report Type: Spontaneous
  Country: US (occurrence: US)
  Receive Date: 20251110
  Receipt Date: 20251110
  Transmission Date: 20260117
  Serious: Yes (Other)
  Sender: HIKMA
  Company Number: US-HIKMA PHARMACEUTICALS USA INC.-US-H14001-24-03323

PATIENT
  Sex: Female

DRUGS (1)
  1. BUTORPHANOL TARTRATE [Suspect]
     Active Substance: BUTORPHANOL TARTRATE
     Indication: Headache
     Dosage: UNK;1 TO 2 SPRAYS PRN, 1 TO 2 TIMES PER DAY
     Route: 045

REACTIONS (4)
  - Malaise [Unknown]
  - Loss of consciousness [Unknown]
  - Seizure [Unknown]
  - Product use issue [Unknown]
